FAERS Safety Report 15833076 (Version 4)
Quarter: 2019Q1

REPORT INFORMATION
  Report Type: Spontaneous
  Country: FI (occurrence: FI)
  Receive Date: 20190116
  Receipt Date: 20190131
  Transmission Date: 20190417
  Serious: Yes (Hospitalization, Other)
  Sender: FDA-Public Use
  Company Number: FI-GLAXOSMITHKLINE-FI2019GSK005871

PATIENT
  Sex: Female

DRUGS (5)
  1. SERETIDE [Suspect]
     Active Substance: FLUTICASONE PROPIONATE\SALMETEROL XINAFOATE
     Dosage: UNK, 25/50 2S X 2
  2. SERETIDE [Suspect]
     Active Substance: FLUTICASONE PROPIONATE\SALMETEROL XINAFOATE
     Indication: PRODUCT USED FOR UNKNOWN INDICATION
     Dosage: UNK, 25/125 2S X 2
  3. CORTISONE CREAM (HYDROCORTISONE) [Suspect]
     Active Substance: HYDROCORTISONE
     Indication: PRODUCT USED FOR UNKNOWN INDICATION
     Dosage: UNK
  4. FLIXOTIDE EVOHALER [Suspect]
     Active Substance: FLUTICASONE PROPIONATE
     Indication: ASTHMA
     Dosage: UNK
  5. PREDNISOLON [Suspect]
     Active Substance: PREDNISOLONE
     Indication: EAR INFECTION
     Dosage: 10 MG, UNK
     Route: 048
     Dates: start: 20170407, end: 20170409

REACTIONS (19)
  - Loss of consciousness [Unknown]
  - Constipation [Unknown]
  - Body temperature fluctuation [Unknown]
  - Nausea [Unknown]
  - Sleep disorder [Unknown]
  - Diarrhoea [Unknown]
  - Weight decreased [Unknown]
  - Feeling cold [Unknown]
  - Influenza [Unknown]
  - Adrenal suppression [Not Recovered/Not Resolved]
  - Vomiting [Unknown]
  - Hypotonia [Unknown]
  - Malaise [Unknown]
  - Product use issue [Unknown]
  - Fatigue [Unknown]
  - Abdominal pain [Unknown]
  - Growth retardation [Unknown]
  - Decreased appetite [Unknown]
  - Off label use [Unknown]

NARRATIVE: CASE EVENT DATE: 2018
